FAERS Safety Report 7684078-8 (Version None)
Quarter: 2011Q3

REPORT INFORMATION
  Report Type: 
  Country: None (occurrence: None)
  Receive Date: 20110815
  Receipt Date: 20110804
  Transmission Date: 20111222
  Serious: No
  Sender: FDA-Public Use
  Company Number: US-ASTRAZENECA-2011SE37490

PATIENT
  Age: 82 Year
  Sex: Female

DRUGS (3)
  1. CELEXA [Concomitant]
  2. NEXIUM [Suspect]
     Route: 048
  3. ARICEPT [Concomitant]

REACTIONS (3)
  - DEPRESSION [None]
  - ABNORMAL DREAMS [None]
  - MUSCLE SPASMS [None]
